FAERS Safety Report 9842321 (Version 1)
Quarter: 2013Q4

REPORT INFORMATION
  Report Type: Spontaneous
  Country: US (occurrence: None)
  Receive Date: 20131219
  Receipt Date: 20131219
  Transmission Date: 20140711
  Serious: Yes (Death)
  Sender: FDA-Public Use
  Company Number: 163-20785-12103881

PATIENT
  Age: 74 Year
  Sex: Male

DRUGS (5)
  1. THALOMID (THALIDOMIDE) (CAPSULES) [Suspect]
     Indication: PLASMA CELL MYELOMA
     Dosage: 1 IN 1 D
     Route: 048
     Dates: start: 20121016, end: 2012
  2. DEXAMETHASONE [Concomitant]
  3. ACYCLOVIR [Concomitant]
  4. BACTRIM [Concomitant]
  5. VELCADE [Concomitant]

REACTIONS (1)
  - Death [None]
